FAERS Safety Report 9303161 (Version 1)
Quarter: 2013Q2

REPORT INFORMATION
  Report Type: Spontaneous
  Country: DK (occurrence: IT)
  Receive Date: 20130522
  Receipt Date: 20130522
  Transmission Date: 20140414
  Serious: Yes (Hospitalization)
  Sender: FDA-Public Use
  Company Number: IT-FRI-1000045264

PATIENT
  Age: 87 Year
  Sex: Male

DRUGS (18)
  1. ESCITALOPRAM ORAL SOLUTION [Suspect]
     Dosage: 10 MG
     Route: 048
  2. OXYGEN [Suspect]
  3. LANSOPRAZOLE [Suspect]
     Dosage: 15 MG
  4. METHYLPREDNISOLONE [Suspect]
     Dosage: 8 MG
  5. PARACETAMOL [Suspect]
     Dosage: 1500 MG
  6. ACETYLCYSTEINE [Suspect]
     Dosage: 2 DF
  7. FLUTICASONE AEROSOL [Suspect]
  8. ALLOPURINOL [Suspect]
     Dosage: 300 MG
  9. FUROSEMIDE [Suspect]
     Dosage: 50 MG
  10. PREGABALIN [Suspect]
     Dosage: 50 MG
  11. ACETYLSALICYLIC ACID [Suspect]
     Dosage: 1 DF
  12. CALCIUM LEVOFOLINATE PENTAHYDRATE [Suspect]
     Dosage: 7.5 MG
  13. CYANOCOBALAMIN [Suspect]
  14. CALCITRIOL [Suspect]
     Dosage: 0.25 MG
  15. PROMAZINE HYDROCHLORIDE [Suspect]
     Dosage: 5-10 DROPS
  16. DELORAZEPAM [Suspect]
     Dosage: 13 DROPS
  17. VALERIAN [Suspect]
  18. LIQUORICE [Suspect]

REACTIONS (8)
  - Faecaloma [Recovered/Resolved]
  - Dehydration [Recovered/Resolved]
  - Agitation [Unknown]
  - Confusional state [Unknown]
  - Abdominal pain [Unknown]
  - Abdominal pain upper [Unknown]
  - Erythema [Unknown]
  - Haemorrhoids [Unknown]
